FAERS Safety Report 5337116-1 (Version None)
Quarter: 2007Q2

REPORT INFORMATION
  Report Type: 
  Country: None (occurrence: None)
  Receive Date: 20070529
  Receipt Date: 20070517
  Transmission Date: 20071010
  Serious: Yes (Other)
  Sender: FDA-Public Use
  Company Number: US-ELI_LILLY_AND_COMPANY-US200705004434

PATIENT
  Age: 25 Year
  Sex: Female

DRUGS (2)
  1. STRATTERA [Suspect]
     Indication: DEPRESSION
     Dosage: 40 MG, DAILY (1/D)
     Dates: start: 20070401
  2. VITAMINS [Concomitant]

REACTIONS (4)
  - FEELING ABNORMAL [None]
  - LOSS OF CONSCIOUSNESS [None]
  - NIGHTMARE [None]
  - SUICIDAL IDEATION [None]
